FAERS Safety Report 17473786 (Version 1)
Quarter: 2020Q1

REPORT INFORMATION
  Report Type: Spontaneous
  Country: US (occurrence: US)
  Receive Date: 20200228
  Receipt Date: 20200228
  Transmission Date: 20200409
  Serious: Yes (Death, Hospitalization)
  Sender: FDA-Public Use
  Company Number: US-MYLANLABS-2020M1021144

PATIENT
  Age: 35 Year
  Sex: Male

DRUGS (2)
  1. FOMEPIZOLE. [Suspect]
     Active Substance: FOMEPIZOLE
     Indication: ALCOHOL POISONING
     Dosage: UNK
     Route: 065
  2. METOPROLOL. [Concomitant]
     Active Substance: METOPROLOL
     Indication: DRUG THERAPY
     Dosage: UNK
     Route: 065

REACTIONS (1)
  - Drug ineffective [Fatal]
